FAERS Safety Report 7525347-1 (Version None)
Quarter: 2011Q2

REPORT INFORMATION
  Report Type: 
  Country: None (occurrence: None)
  Receive Date: 20110602
  Receipt Date: 20110602
  Transmission Date: 20111010
  Serious: Yes (Other)
  Sender: FDA-Public Use
  Company Number: None

PATIENT
  Sex: Female
  Weight: 75.7507 kg

DRUGS (1)
  1. LIPITOR [Suspect]
     Dosage: LOVASTATIN QD
     Dates: start: 20081101

REACTIONS (1)
  - NO ADVERSE EVENT [None]
